FAERS Safety Report 13449888 (Version 1)
Quarter: 2017Q2

REPORT INFORMATION
  Report Type: Spontaneous
  Country: None (occurrence: US)
  Receive Date: 20170417
  Receipt Date: 20170417
  Transmission Date: 20170830
  Serious: No
  Sender: FDA-Public Use
  Company Number: US-BION-20160209

PATIENT
  Age: 80 Year
  Sex: Male
  Weight: 95.25 kg

DRUGS (5)
  1. UNKNOWN HEART PILL [Concomitant]
  2. ALEVE [Suspect]
     Active Substance: NAPROXEN SODIUM
     Indication: POST-TRAUMATIC PAIN
     Route: 048
  3. ALEVE PM [Suspect]
     Active Substance: DIPHENHYDRAMINE HYDROCHLORIDE\NAPROXEN SODIUM
     Indication: POST-TRAUMATIC PAIN
     Dosage: 2 DOSAGE FORMS USED ONLY ONCE
     Dates: start: 20160602, end: 20160602
  4. ASPIRIN. [Concomitant]
     Active Substance: ASPIRIN
  5. OXYCONTIN [Concomitant]
     Active Substance: OXYCODONE HYDROCHLORIDE

REACTIONS (3)
  - Product use in unapproved indication [Unknown]
  - Drug ineffective [Unknown]
  - Drug prescribing error [Unknown]

NARRATIVE: CASE EVENT DATE: 20160602
